FAERS Safety Report 25249073 (Version 1)
Quarter: 2025Q2

REPORT INFORMATION
  Report Type: Spontaneous
  Country: CN (occurrence: CN)
  Receive Date: 20250429
  Receipt Date: 20250429
  Transmission Date: 20250716
  Serious: Yes (Death, Other)
  Sender: AMGEN
  Company Number: CN-AMGEN-CHNSP2025084219

PATIENT
  Age: 44 Year

DRUGS (2)
  1. BLINATUMOMAB [Suspect]
     Active Substance: BLINATUMOMAB
     Indication: Acute lymphocytic leukaemia
     Route: 065
  2. OLVEREMBATINIB [Concomitant]
     Active Substance: OLVEREMBATINIB
     Indication: Acute lymphocytic leukaemia

REACTIONS (3)
  - Multiple organ dysfunction syndrome [Fatal]
  - Acute lymphocytic leukaemia recurrent [Unknown]
  - Therapy partial responder [Unknown]
